FAERS Safety Report 4785704-3 (Version None)
Quarter: 2005Q4

REPORT INFORMATION
  Report Type: 
  Country: None (occurrence: None)
  Receive Date: 20051003
  Receipt Date: 20050322
  Transmission Date: 20060501
  Serious: Yes (Hospitalization)
  Sender: FDA-Public Use
  Company Number: US-KINGPHARMUSA00001-K200500408

PATIENT
  Age: 68 Year
  Sex: Male

DRUGS (12)
  1. ALTACE [Suspect]
  2. LASILIX [Suspect]
  3. ZOLADEX [Suspect]
     Indication: PROSTATE CANCER
     Dosage: 10.8 MG, QD
     Dates: start: 20030701
  4. OMEPRAZOLE [Suspect]
     Dosage: 1 CAPSULE, QD
     Route: 048
  5. FONZYLANE [Suspect]
     Dosage: 2, QD
     Route: 048
     Dates: start: 20030701
  6. XATRAL  /FRA/ [Suspect]
     Dosage: 1, QD
     Dates: start: 20030701
  7. ELISOR [Suspect]
     Dosage: 1, QD
     Route: 048
     Dates: start: 20030701
  8. KREDEX [Suspect]
     Dosage: 2, QD
     Route: 048
     Dates: start: 20030701
  9. PLAVIX [Suspect]
     Dosage: 1, QD
     Route: 048
  10. ASPEGIC 325 [Suspect]
     Dosage: 100 MG, QD
  11. LIBRAX [Suspect]
     Dosage: 2, QD
  12. DIFFU K [Suspect]
     Dosage: 3, QD

REACTIONS (2)
  - ARTERIOSPASM CORONARY [None]
  - MYOCARDIAL INFARCTION [None]
